FAERS Safety Report 15897048 (Version 2)
Quarter: 2019Q1

REPORT INFORMATION
  Report Type: Report from Study
  Country: AT (occurrence: AT)
  Receive Date: 20190131
  Receipt Date: 20190207
  Transmission Date: 20190417
  Serious: Yes (Hospitalization)
  Sender: FDA-Public Use
  Company Number: AT-MYLANLABS-2019M1004970

PATIENT
  Age: 65 Year
  Sex: Female
  Weight: 89 kg

DRUGS (24)
  1. TRASTUZUMAB. [Suspect]
     Active Substance: TRASTUZUMAB
     Indication: BREAST CANCER METASTATIC
     Dosage: 712 MILLIGRAM, Q3W (MOST RECENT DOSE PRIOR TO THE EVENT: 14/JUL/2017, 08/JUN/2018)
     Route: 042
     Dates: start: 20170324, end: 20170324
  2. MEXALEN [Concomitant]
     Active Substance: ACETAMINOPHEN
     Dosage: ONGOING = CHECKED
     Route: 065
     Dates: start: 20180715
  3. MOLAXOLE [Concomitant]
     Active Substance: POLYETHYLENE GLYCOL 3350\POTASSIUM CHLORIDE\SODIUM BICARBONATE\SODIUM CHLORIDE
     Dosage: UNK
     Route: 065
     Dates: start: 20180715
  4. TAXOTERE [Suspect]
     Active Substance: DOCETAXEL
     Indication: BREAST CANCER
     Dosage: 137 MILLIGRAM, Q3W
     Route: 042
     Dates: start: 20180608
  5. PERTUZUMAB. [Suspect]
     Active Substance: PERTUZUMAB
     Dosage: 840 MILLIGRAM, Q3W
     Route: 042
     Dates: start: 20171213, end: 20171213
  6. XGEVA [Concomitant]
     Active Substance: DENOSUMAB
     Indication: PRODUCT USED FOR UNKNOWN INDICATION
     Dosage: UNK
     Route: 065
     Dates: start: 20170505
  7. CONCOR [Concomitant]
     Active Substance: BISOPROLOL FUMARATE
     Indication: HYPERTENSION
     Dosage: ONGOING = CHECKED
     Route: 065
     Dates: start: 20171120, end: 20171213
  8. TORASEMID [Concomitant]
     Active Substance: TORSEMIDE
     Indication: HYPERTENSION
     Dosage: ONGOING = CHECKED
     Route: 065
     Dates: start: 20121213
  9. ULSAL [Concomitant]
     Active Substance: RANITIDINE HYDROCHLORIDE
     Indication: PRODUCT USED FOR UNKNOWN INDICATION
     Dosage: ONGOING = CHECKED
     Route: 065
     Dates: start: 20170414
  10. ANDOL [Concomitant]
     Active Substance: ASPIRIN
     Indication: HYPERTENSION
     Dosage: ONGOING = CHECKED
     Route: 065
     Dates: start: 20171120
  11. MEROPENEM. [Concomitant]
     Active Substance: MEROPENEM
     Dosage: UNK,ONGOING = NOT CHECKED
     Route: 065
     Dates: start: 20180705, end: 20180712
  12. FENISTIL [Concomitant]
     Active Substance: DIMETHINDENE
     Indication: PRODUCT USED FOR UNKNOWN INDICATION
     Dosage: ONGOING = CHECKED
     Route: 065
     Dates: start: 20170414
  13. KYTRIL [Concomitant]
     Active Substance: GRANISETRON HYDROCHLORIDE
     Indication: PRODUCT USED FOR UNKNOWN INDICATION
     Dosage: UNK
     Route: 065
     Dates: start: 20180608
  14. LOVENOX [Concomitant]
     Active Substance: ENOXAPARIN SODIUM
     Dosage: UNK,ONGOING = NOT CHECKED
     Route: 065
     Dates: start: 20180715
  15. ANASTROZOLE. [Suspect]
     Active Substance: ANASTROZOLE
     Indication: BREAST CANCER METASTATIC
     Dosage: 1 MILLIGRAM, QD
     Route: 048
     Dates: start: 20170324, end: 20180514
  16. TRASTUZUMAB. [Suspect]
     Active Substance: TRASTUZUMAB
     Dosage: 712 MILLIGRAM, Q3W (MOST RECENT DOSE PRIOR TO THE EVENT: 14/JUL/2017, 08/JUN/2018)
     Route: 042
     Dates: start: 20170714, end: 20170714
  17. TRASTUZUMAB. [Suspect]
     Active Substance: TRASTUZUMAB
     Dosage: 712 MILLIGRAM, Q3W (MOST RECENT DOSE PRIOR TO THE EVENT: 14/JUL/2017, 08/JUN/2018)
     Route: 042
     Dates: start: 20180608, end: 20180608
  18. PANTOPRAZOL                        /01263201/ [Concomitant]
     Active Substance: PANTOPRAZOLE
     Indication: PRODUCT USED FOR UNKNOWN INDICATION
     Dosage: ONGOING = CHECKED
     Route: 065
  19. AVELOX [Concomitant]
     Active Substance: MOXIFLOXACIN HYDROCHLORIDE
     Dosage: UNK,ONGOING = CHECKED
     Route: 065
     Dates: start: 20180712
  20. PERTUZUMAB. [Suspect]
     Active Substance: PERTUZUMAB
     Indication: BREAST CANCER METASTATIC
     Dosage: 840 MILLIGRAM, Q3W (MOST RECENT DOSE PRIOR TO THE EVENT: 14/JUL/2017, 13/DEC/2017)
     Route: 042
     Dates: start: 20170324, end: 20170324
  21. PERTUZUMAB. [Suspect]
     Active Substance: PERTUZUMAB
     Dosage: 840 MILLIGRAM, Q3W
     Route: 042
     Dates: start: 20170714, end: 20170714
  22. VIBRAMYCIN [Concomitant]
     Active Substance: DOXYCYCLINE
     Indication: SINUSITIS
     Dosage: UNK
     Route: 065
     Dates: start: 20180417, end: 20180615
  23. DEXAMETHASON                       /00016001/ [Concomitant]
     Active Substance: DEXAMETHASONE
     Indication: PRODUCT USED FOR UNKNOWN INDICATION
     Dosage: UNK
     Route: 065
     Dates: start: 20170414
  24. CORTISON [Concomitant]
     Active Substance: CORTISONE ACETATE
     Indication: PRODUCT USED FOR UNKNOWN INDICATION
     Dosage: UNK
     Route: 065
     Dates: start: 20180608

REACTIONS (5)
  - Pyrexia [Not Recovered/Not Resolved]
  - Dyspnoea exertional [Recovered/Resolved]
  - Pain [Not Recovered/Not Resolved]
  - Dyspnoea [Not Recovered/Not Resolved]
  - Ill-defined disorder [Recovered/Resolved]

NARRATIVE: CASE EVENT DATE: 20171030
